FAERS Safety Report 9819359 (Version 1)
Quarter: 2013Q4

REPORT INFORMATION
  Report Type: Spontaneous
  Country: US (occurrence: None)
  Receive Date: 20131223
  Receipt Date: 20131223
  Transmission Date: 20140711
  Serious: Yes (Other)
  Sender: FDA-Public Use
  Company Number: 221000

PATIENT
  Age: 59 Year
  Sex: Male

DRUGS (6)
  1. PICATO GEL [Suspect]
     Indication: ACTINIC KERATOSIS
     Dosage: 1 IN 1 D TOPICAL
     Route: 061
     Dates: start: 20130314, end: 20130315
  2. ROBAXIN (METHOCARBAMOL) [Concomitant]
  3. CLONOPIN (CLONAZEPAM) [Concomitant]
  4. CELEBREX (CELECOXIB) [Concomitant]
  5. OMEPRAZOLE (OMEPRAZOLE) [Concomitant]
  6. PRAVASTATIN (PRAVASTATIN) [Concomitant]

REACTIONS (9)
  - Application site erythema [None]
  - Application site exfoliation [None]
  - Application site scab [None]
  - Application site fissure [None]
  - Application site vesicles [None]
  - Application site ulcer [None]
  - Incorrect dose administered [None]
  - Drug administered at inappropriate site [None]
  - Application site haemorrhage [None]
